FAERS Safety Report 8274109-9 (Version None)
Quarter: 2012Q2

REPORT INFORMATION
  Report Type: 
  Country: None (occurrence: None)
  Receive Date: 20120411
  Receipt Date: 20120405
  Transmission Date: 20120825
  Serious: Yes (Other)
  Sender: FDA-Public Use
  Company Number: CA-PFIZER INC-2012086573

PATIENT
  Age: 37 Year
  Sex: Male

DRUGS (4)
  1. DEPO-TESTOSTERONE [Suspect]
     Dosage: 0.75 ML, EVERY 6 DAYS
     Dates: start: 20120201, end: 20120330
  2. COPAXONE [Concomitant]
     Dosage: UNK
     Dates: start: 20111201
  3. GABAPENTIN [Concomitant]
     Dosage: 800 MG, EVERYDAY AT BEDTIME
  4. CLONAZEPAM [Concomitant]
     Dosage: 1 MG, EVERYDAY AT BEDTIME

REACTIONS (5)
  - MULTIPLE SCLEROSIS RELAPSE [None]
  - DYSPNOEA [None]
  - HYPOAESTHESIA [None]
  - HICCUPS [None]
  - HYPOAESTHESIA ORAL [None]
